FAERS Safety Report 6189273-5 (Version None)
Quarter: 2009Q2

REPORT INFORMATION
  Report Type: 
  Country: None (occurrence: None)
  Receive Date: 20090512
  Receipt Date: 20090429
  Transmission Date: 20091009
  Serious: Yes (Other)
  Sender: FDA-Public Use
  Company Number: 2009S1000028

PATIENT
  Sex: Male

DRUGS (8)
  1. INOMAX [Suspect]
     Indication: LUNG DISORDER
     Dosage: 10 PPM; CONT; INH, 5 PPM; CONT; INH
     Route: 055
     Dates: start: 20090423, end: 20090425
  2. INOMAX [Suspect]
     Indication: PROPHYLAXIS
     Dosage: 10 PPM; CONT; INH, 5 PPM; CONT; INH
     Route: 055
     Dates: start: 20090423, end: 20090425
  3. INOMAX [Suspect]
     Indication: LUNG DISORDER
     Dosage: 10 PPM; CONT; INH, 5 PPM; CONT; INH
     Route: 055
     Dates: start: 20090425
  4. INOMAX [Suspect]
     Indication: PROPHYLAXIS
     Dosage: 10 PPM; CONT; INH, 5 PPM; CONT; INH
     Route: 055
     Dates: start: 20090425
  5. INOMAX [Suspect]
     Indication: LUNG DISORDER
     Dosage: 10 PPM; CONT; INH, 5 PPM; CONT; INH
     Route: 055
     Dates: start: 20090426
  6. INOMAX [Suspect]
     Indication: PROPHYLAXIS
     Dosage: 10 PPM; CONT; INH, 5 PPM; CONT; INH
     Route: 055
     Dates: start: 20090426
  7. INOMAX [Suspect]
     Indication: LUNG DISORDER
     Dosage: 10 PPM; CONT; INH, 5 PPM; CONT; INH
     Route: 055
     Dates: start: 20090428
  8. INOMAX [Suspect]
     Indication: PROPHYLAXIS
     Dosage: 10 PPM; CONT; INH, 5 PPM; CONT; INH
     Route: 055
     Dates: start: 20090428

REACTIONS (1)
  - HAEMORRHAGE INTRACRANIAL [None]
